FAERS Safety Report 17561656 (Version 2)
Quarter: 2021Q3

REPORT INFORMATION
  Report Type: Spontaneous
  Country: IN (occurrence: IN)
  Receive Date: 20200319
  Receipt Date: 20210820
  Transmission Date: 20211014
  Serious: Yes (Death, Other)
  Sender: FDA-Public Use
  Company Number: IN-PFIZER INC-2020074750

PATIENT
  Age: 47 Year
  Sex: Female

DRUGS (2)
  1. PALBACE [Suspect]
     Active Substance: PALBOCICLIB
     Indication: BREAST CANCER METASTATIC
     Dosage: 125 MG, 1X/DAY
     Route: 048
     Dates: start: 20190425, end: 20200801
  2. FASLODEX [Concomitant]
     Active Substance: FULVESTRANT
     Indication: BREAST CANCER METASTATIC
     Dosage: UNK

REACTIONS (5)
  - Pruritus [Recovering/Resolving]
  - Neuropathy peripheral [Recovering/Resolving]
  - Sciatica [Unknown]
  - Neoplasm progression [Fatal]
  - White blood cell count abnormal [Unknown]
